FAERS Safety Report 6255841-5 (Version None)
Quarter: 2009Q3

REPORT INFORMATION
  Report Type: 
  Country: None (occurrence: None)
  Receive Date: 20090703
  Receipt Date: 20090622
  Transmission Date: 20100115
  Serious: Yes (Hospitalization)
  Sender: FDA-Public Use
  Company Number: JP-BAXTER-2009BH010573

PATIENT
  Age: 42 Year
  Sex: Male

DRUGS (12)
  1. HOLOXAN BAXTER [Suspect]
     Indication: CHEMOTHERAPY
     Route: 042
  2. ENDOXAN BAXTER [Suspect]
     Indication: CHEMOTHERAPY
     Route: 042
  3. LASTET [Suspect]
     Indication: CHEMOTHERAPY
     Route: 042
  4. RANDA [Suspect]
     Indication: CHEMOTHERAPY
     Route: 042
  5. PEPLEO [Suspect]
     Indication: CHEMOTHERAPY
     Route: 065
  6. VINBLASTINE SULFATE [Suspect]
     Indication: CHEMOTHERAPY
     Route: 042
  7. AQUPLA [Suspect]
     Indication: CHEMOTHERAPY
     Route: 042
  8. CARBOPLATIN [Suspect]
     Indication: CHEMOTHERAPY
     Route: 041
  9. GEMZAR [Suspect]
     Indication: CHEMOTHERAPY
     Route: 041
  10. TAXOTERE [Suspect]
     Indication: CHEMOTHERAPY
     Route: 041
  11. PACLITAXEL [Suspect]
     Indication: CHEMOTHERAPY
     Route: 041
  12. COSMEGEN [Suspect]
     Indication: CHEMOTHERAPY
     Route: 042

REACTIONS (1)
  - ACUTE MYELOID LEUKAEMIA [None]
